FAERS Safety Report 11139993 (Version 9)
Quarter: 2015Q4

REPORT INFORMATION
  Report Type: Spontaneous
  Country: US (occurrence: US)
  Receive Date: 20150527
  Receipt Date: 20151218
  Transmission Date: 20160304
  Serious: Yes (Other)
  Sender: FDA-Public Use
  Company Number: US-PFIZER INC-2015176271

PATIENT
  Age: 81 Year
  Sex: Female
  Weight: 50 kg

DRUGS (9)
  1. AROMASIN [Suspect]
     Active Substance: EXEMESTANE
     Dosage: 25 MG, 1X/DAY
     Route: 048
     Dates: start: 201411
  2. AROMASIN [Suspect]
     Active Substance: EXEMESTANE
     Dosage: 25 MG, 1X/DAY
     Route: 048
     Dates: start: 201411
  3. CLONIDINE. [Concomitant]
     Active Substance: CLONIDINE
     Indication: BLOOD PRESSURE ABNORMAL
  4. CLONIDINE. [Concomitant]
     Active Substance: CLONIDINE
     Indication: HOT FLUSH
     Dosage: 0.1 MG, 1X/DAY
     Dates: start: 2000
  5. CLONIDINE. [Concomitant]
     Active Substance: CLONIDINE
     Indication: NIGHT SWEATS
     Dosage: 1 MG, 1X/DAY
  6. AROMASIN [Suspect]
     Active Substance: EXEMESTANE
     Indication: BREAST CANCER METASTATIC
     Dosage: 25 MG, 1X/DAY
     Route: 048
     Dates: start: 20141101
  7. LORAZEPAM. [Concomitant]
     Active Substance: LORAZEPAM
     Indication: ANXIETY
     Dosage: 1 MG, AS NEEDED (MAY TAKE A HALF OR FOURTH TABLET)
  8. CLONIDINE. [Concomitant]
     Active Substance: CLONIDINE
     Indication: ANXIETY
  9. LORAZEPAM. [Concomitant]
     Active Substance: LORAZEPAM
     Indication: SLEEP DISORDER
     Dosage: 0.1 MG, 1X/DAY
     Dates: start: 2000

REACTIONS (26)
  - Disease progression [Not Recovered/Not Resolved]
  - Neck pain [Unknown]
  - Bone pain [Unknown]
  - Malaise [Unknown]
  - Intentional product misuse [Recovered/Resolved]
  - Yellow skin [Unknown]
  - Oropharyngeal pain [Unknown]
  - Urinary tract infection [Unknown]
  - Hyperhidrosis [Not Recovered/Not Resolved]
  - Abdominal discomfort [Unknown]
  - Pollakiuria [Unknown]
  - Chills [Recovered/Resolved]
  - Kidney infection [Recovering/Resolving]
  - Vaginal odour [Not Recovered/Not Resolved]
  - Dyspepsia [Unknown]
  - Dysuria [Unknown]
  - Hot flush [Not Recovered/Not Resolved]
  - Osteoporosis [Unknown]
  - Vaginal discharge [Not Recovered/Not Resolved]
  - Fatigue [Unknown]
  - Breast cancer metastatic [Not Recovered/Not Resolved]
  - Musculoskeletal stiffness [Unknown]
  - Blood pressure increased [Unknown]
  - Headache [Unknown]
  - Crying [Unknown]
  - Pyrexia [Recovered/Resolved]

NARRATIVE: CASE EVENT DATE: 20150103
